FAERS Safety Report 8764942 (Version 1)
Quarter: 2012Q4

REPORT INFORMATION
  Report Type: 
  Country: FR (occurrence: FR)
  Receive Date: 20120903
  Receipt Date: 20120903
  Transmission Date: 20130627
  Serious: Yes (Hospitalization)
  Sender: FDA-Public Use
  Company Number: FR-BRISTOL-MYERS SQUIBB COMPANY-16891418

PATIENT
  Age: 86 Year
  Sex: Female

DRUGS (8)
  1. APROVEL TABS 150 MG [Suspect]
     Route: 048
     Dates: end: 20120617
  2. DEROXAT [Suspect]
     Dosage: Tab
     Route: 048
     Dates: end: 201207
  3. KARDEGIC [Concomitant]
     Dosage: 1df= 75-units nos
  4. FLECAINE [Concomitant]
     Dosage: 1df= LP 100-units nos
  5. TRIVASTAL [Concomitant]
     Dosage: 1df= LP 50-units nos
  6. OROCAL D3 [Concomitant]
  7. FOSAMAX [Concomitant]
  8. NOCTRAN [Concomitant]

REACTIONS (4)
  - Orthostatic hypotension [Recovered/Resolved]
  - Hyponatraemia [Recovered/Resolved]
  - Fall [Recovered/Resolved]
  - Pyelonephritis [Unknown]
